FAERS Safety Report 15722829 (Version 1)
Quarter: 2018Q4

REPORT INFORMATION
  Report Type: Report from Study
  Country: CA (occurrence: CA)
  Receive Date: 20181214
  Receipt Date: 20181214
  Transmission Date: 20190205
  Serious: Yes (Death, Hospitalization)
  Sender: FDA-Public Use
  Company Number: CA-PFIZER INC-2018511811

PATIENT
  Age: 65 Year
  Sex: Female

DRUGS (4)
  1. SUTENT [Suspect]
     Active Substance: SUNITINIB MALATE
     Indication: NEOPLASM MALIGNANT
     Dosage: UNK
     Route: 065
  2. SANDOSTATIN LAR DEPOT [Suspect]
     Active Substance: OCTREOTIDE ACETATE
     Indication: PANCREATIC NEUROENDOCRINE TUMOUR METASTATIC
     Dosage: 30 MG, UNK (1 EVERY 1 MONTH)
     Route: 030
  3. SANDOSTATIN [Suspect]
     Active Substance: OCTREOTIDE ACETATE
     Indication: PANCREATIC NEUROENDOCRINE TUMOUR METASTATIC
     Dosage: UNK (TOTAL)
     Route: 058
  4. AFINITOR [Suspect]
     Active Substance: EVEROLIMUS
     Indication: PANCREATIC NEUROENDOCRINE TUMOUR METASTATIC
     Dosage: 10 MG, 1X/DAY
     Route: 048

REACTIONS (26)
  - Weight decreased [Unknown]
  - Abdominal pain [Unknown]
  - Body temperature decreased [Unknown]
  - Decreased activity [Unknown]
  - Influenza [Unknown]
  - Abnormal behaviour [Unknown]
  - Death [Fatal]
  - Abdominal discomfort [Unknown]
  - Anxiety [Unknown]
  - Dysgeusia [Unknown]
  - Lung infection [Unknown]
  - Nausea [Unknown]
  - Slow speech [Unknown]
  - Vomiting [Unknown]
  - Blood glucose increased [Unknown]
  - Blood pressure decreased [Unknown]
  - Blood pressure systolic increased [Unknown]
  - Confusional state [Unknown]
  - Fatigue [Unknown]
  - Heart rate irregular [Unknown]
  - Swollen tongue [Unknown]
  - Tremor [Unknown]
  - Cough [Unknown]
  - Pain [Unknown]
  - Diarrhoea [Unknown]
  - Lower respiratory tract infection [Unknown]
